FAERS Safety Report 11898547 (Version 1)
Quarter: 2016Q1

REPORT INFORMATION
  Report Type: Spontaneous
  Country: US (occurrence: None)
  Receive Date: 20160107
  Receipt Date: 20160107
  Transmission Date: 20160526
  Serious: Yes (Other)
  Sender: FDA-Public Use
  Company Number: None

PATIENT
  Age: 69 Year
  Sex: Female
  Weight: 61.24 kg

DRUGS (2)
  1. LATANOPROST 2.5ML GREENSTONE [Suspect]
     Active Substance: LATANOPROST
     Indication: GLAUCOMA
     Route: 031
     Dates: start: 20140101, end: 20160101
  2. NATURE-THROID [Concomitant]
     Active Substance: THYROID, PORCINE

REACTIONS (3)
  - Eye disorder [None]
  - Facial paralysis [None]
  - Swelling face [None]

NARRATIVE: CASE EVENT DATE: 20160101
